FAERS Safety Report 7118516-6 (Version None)
Quarter: 2010Q4

REPORT INFORMATION
  Report Type: 
  Country: None (occurrence: None)
  Receive Date: 20101123
  Receipt Date: 20100707
  Transmission Date: 20110411
  Serious: No
  Sender: FDA-Public Use
  Company Number: US-MYLANLABS-2010S1012240

PATIENT
  Sex: Female

DRUGS (2)
  1. CLONAZEPAM [Suspect]
     Indication: ANXIETY
     Route: 048
     Dates: start: 19800101
  2. CLONAZEPAM [Suspect]
     Indication: ANXIETY
     Route: 048
     Dates: start: 20090601

REACTIONS (5)
  - ABNORMAL DREAMS [None]
  - NIGHTMARE [None]
  - PARAESTHESIA [None]
  - TEMPOROMANDIBULAR JOINT SYNDROME [None]
  - VITREOUS FLOATERS [None]
